FAERS Safety Report 8573438-9 (Version None)
Quarter: 2012Q3

REPORT INFORMATION
  Report Type: 
  Country: None (occurrence: None)
  Receive Date: 20120806
  Receipt Date: 20120802
  Transmission Date: 20120928
  Serious: Yes (Other)
  Sender: FDA-Public Use
  Company Number: US-PFIZER INC-2012189477

PATIENT
  Sex: Male
  Weight: 68.03 kg

DRUGS (1)
  1. CELEBREX [Suspect]
     Indication: MUSCLE STRAIN
     Dosage: UNK
     Dates: end: 20120101

REACTIONS (4)
  - WEIGHT DECREASED [None]
  - BLOOD PRESSURE DIASTOLIC INCREASED [None]
  - CEREBROVASCULAR ACCIDENT [None]
  - MUSCULAR WEAKNESS [None]
